FAERS Safety Report 21536459 (Version 2)
Quarter: 2022Q4

REPORT INFORMATION
  Report Type: Spontaneous
  Country: US (occurrence: US)
  Receive Date: 20221101
  Receipt Date: 20221104
  Transmission Date: 20230112
  Serious: Yes (Hospitalization, Other)
  Sender: FDA-Public Use
  Company Number: US-PROCTER_AND_GAMBLE-PH22010744

PATIENT
  Age: 22 Year
  Sex: Female

DRUGS (3)
  1. DIPHENHYDRAMINE HYDROCHLORIDE [Suspect]
     Active Substance: DIPHENHYDRAMINE HYDROCHLORIDE
     Dosage: UNK ( NEARLY EMPTY BOTTLE OF ACETAMINOPHEN-DIPHENHYDRAMINE PILLS)
  2. ACETAMINOPHEN [Suspect]
     Active Substance: ACETAMINOPHEN
  3. 1,1-DIFLUOROETHANE [Suspect]
     Active Substance: 1,1-DIFLUOROETHANE
     Dosage: UNK

REACTIONS (13)
  - Dysarthria [Unknown]
  - Mydriasis [Unknown]
  - Tachycardia [Unknown]
  - Delirium [Unknown]
  - Urinary retention [Unknown]
  - Peripheral swelling [Unknown]
  - Lip swelling [Unknown]
  - Blister [Unknown]
  - Lip blister [Unknown]
  - Cholinergic syndrome [Unknown]
  - Overdose [Unknown]
  - Skin lesion [Unknown]
  - Substance abuse [Unknown]
